FAERS Safety Report 22148482 (Version 1)
Quarter: 2023Q1

REPORT INFORMATION
  Report Type: Spontaneous
  Country: US (occurrence: US)
  Receive Date: 20230328
  Receipt Date: 20230328
  Transmission Date: 20230417
  Serious: No
  Sender: FDA-Public Use
  Company Number: US-SA-SAC20230324001490

PATIENT
  Age: 22 Year
  Sex: Male

DRUGS (2)
  1. ELOCTATE [Suspect]
     Active Substance: EFMOROCTOCOG ALFA
     Dosage: 2500 OR 5000 UNITS, PRN
     Route: 041
  2. ELOCTATE [Suspect]
     Active Substance: EFMOROCTOCOG ALFA
     Dosage: 2500 OR 5000 UNITS, PRN
     Route: 041

REACTIONS (1)
  - Face injury [Unknown]

NARRATIVE: CASE EVENT DATE: 20230321
